FAERS Safety Report 11442861 (Version 1)
Quarter: 2015Q3

REPORT INFORMATION
  Report Type: Spontaneous
  Country: DE (occurrence: DE)
  Receive Date: 20150901
  Receipt Date: 20150901
  Transmission Date: 20151125
  Serious: Yes (Life-Threatening)
  Sender: FDA-Public Use
  Company Number: DE-TEVA-588170GER

PATIENT
  Age: 68 Year
  Sex: Female
  Weight: 59 kg

DRUGS (15)
  1. 5-FU [Suspect]
     Active Substance: FLUOROURACIL
     Dosage: 9.-10. CYCLE MAINTENANCE THERAPY 5-FU/LEUCOVORIN (50% OF THE DOSE)
     Dates: start: 201505, end: 201506
  2. OXALIPLATIN. [Suspect]
     Active Substance: OXALIPLATIN
     Dates: start: 200907, end: 200910
  3. LEUCOVORIN. [Suspect]
     Active Substance: LEUCOVORIN
     Dosage: 5. CYCLE MAINTENANCE THERAPY 5-FU/LEUCOVORIN (50% OF THE DOSE)
     Dates: start: 201501
  4. 5-FU [Suspect]
     Active Substance: FLUOROURACIL
     Dates: start: 200907, end: 200910
  5. LEUCOVORIN. [Suspect]
     Active Substance: LEUCOVORIN
     Dosage: 9.-10. CYCLE MAINTENANCE THERAPY 5-FU/LEUCOVORIN (50% OF THE DOSE)
     Dates: start: 201505, end: 201506
  6. 5-FU [Suspect]
     Active Substance: FLUOROURACIL
     Dosage: 5. CYCLE MAINTENANCE THERAPY 5-FU/LEUCOVORIN (50% OF THE DOSE)
     Dates: start: 20150114
  7. IRINOTECAN [Suspect]
     Active Substance: IRINOTECAN
     Dates: start: 200907, end: 200910
  8. FOLFOX [Suspect]
     Active Substance: FLUOROURACIL\LEUCOVORIN CALCIUM\OXALIPLATIN
     Dosage: 2 CYCLES FOLFOX
     Dates: start: 2010, end: 201010
  9. LEUCOVORIN. [Suspect]
     Active Substance: LEUCOVORIN
     Dosage: 6. CYCLE MAINTENANCE THERAPY 5-FU/LEUCOVORIN (75% OF THE DOSE)
     Dates: start: 201502, end: 201503
  10. 5-FU [Suspect]
     Active Substance: FLUOROURACIL
     Dosage: 6. CYCLE MAINTENANCE THERAPY 5-FU/LEUCOVORIN (75% OF THE DOSE)
     Dates: start: 201502, end: 201503
  11. LEUCOVORIN. [Suspect]
     Active Substance: LEUCOVORIN
     Dosage: 4 CYCLES MAINTENANCE THERAPY 5-FU/LEUCOVORIN (50% OF THE DOSE)
     Dates: start: 201410, end: 201412
  12. 5-FU [Suspect]
     Active Substance: FLUOROURACIL
     Dosage: 4 CYCLES MAINTENANCE THERAPY 5-FU/LEUCOVORIN(50% OF THE DOSE)
     Dates: start: 201410, end: 201412
  13. FOLIC ACID. [Suspect]
     Active Substance: FOLIC ACID
     Dates: start: 200907, end: 200910
  14. FOLFOX [Suspect]
     Active Substance: FLUOROURACIL\LEUCOVORIN CALCIUM\OXALIPLATIN
     Dosage: 12 CYCLES FOLFOX 875% DOSE IN COMBINATION WITH AVASTIN SINCE THE 5.
     Dates: start: 201402, end: 201408
  15. AVASTIN [Suspect]
     Active Substance: BEVACIZUMAB
     Dates: end: 201408

REACTIONS (1)
  - Acute lymphocytic leukaemia [Not Recovered/Not Resolved]

NARRATIVE: CASE EVENT DATE: 201507
